FAERS Safety Report 5927925-X (Version None)
Quarter: 2008Q4

REPORT INFORMATION
  Report Type: 
  Country: None (occurrence: None)
  Receive Date: 20081023
  Receipt Date: 20081020
  Transmission Date: 20090506
  Serious: Yes (Death, Life-Threatening, Hospitalization, Other)
  Sender: FDA-Public Use
  Company Number: US-AVENTIS-200819779GDDC

PATIENT
  Age: 69 Year
  Sex: Male
  Weight: 48 kg

DRUGS (6)
  1. TAXOTERE [Suspect]
     Indication: HEAD AND NECK CANCER
     Route: 042
     Dates: start: 20080908, end: 20080922
  2. HYDREA [Suspect]
     Indication: HEAD AND NECK CANCER
     Dates: start: 20080907, end: 20080912
  3. HYDREA [Suspect]
     Dates: start: 20080921, end: 20080923
  4. FLUOROURACIL [Suspect]
     Indication: HEAD AND NECK CANCER
     Route: 042
     Dates: start: 20080907, end: 20080912
  5. FLUOROURACIL [Suspect]
     Route: 042
     Dates: start: 20080921, end: 20080923
  6. RADIATION THERAPY [Suspect]
     Indication: HEAD AND NECK CANCER
     Dates: start: 20080908, end: 20080912

REACTIONS (3)
  - LUNG INFECTION [None]
  - THROMBOCYTOPENIA [None]
  - TUMOUR HAEMORRHAGE [None]
